FAERS Safety Report 5919379-4 (Version None)
Quarter: 2008Q4

REPORT INFORMATION
  Report Type: 
  Country: None (occurrence: None)
  Receive Date: 20081015
  Receipt Date: 20081010
  Transmission Date: 20090506
  Serious: Yes (Death)
  Sender: FDA-Public Use
  Company Number: B0538425A

PATIENT
  Age: 59 Year
  Sex: Female

DRUGS (27)
  1. ZANTAC [Suspect]
     Indication: GASTRIC ULCER
     Dosage: 50MG TWICE PER DAY
     Route: 042
     Dates: start: 20070508, end: 20070516
  2. DEPAKENE [Suspect]
     Indication: EPILEPSY
     Dosage: 9MG TWICE PER DAY
     Route: 065
     Dates: start: 20070129, end: 20070507
  3. DEPAKENE [Suspect]
     Dosage: 9MG TWICE PER DAY
     Route: 065
     Dates: start: 20070511, end: 20070517
  4. ALDACTONE [Suspect]
     Indication: RENAL FAILURE
     Dosage: 10MG TWICE PER DAY
     Route: 065
     Dates: start: 20070307, end: 20070507
  5. ALDACTONE [Suspect]
     Dosage: 10MG TWICE PER DAY
     Route: 065
     Dates: start: 20070511, end: 20070517
  6. VALPROATE SODIUM [Suspect]
     Indication: EPILEPSY
     Route: 054
     Dates: start: 20070508, end: 20070510
  7. COTRIM [Suspect]
     Indication: PNEUMONIA
     Route: 048
     Dates: start: 20070502, end: 20070515
  8. PENTCILLIN [Suspect]
     Indication: DRUG USE FOR UNKNOWN INDICATION
     Dosage: 1G TWICE PER DAY
     Route: 042
     Dates: start: 20070508, end: 20070514
  9. ADONA (AC-17) [Suspect]
     Dosage: 100MG PER DAY
     Route: 042
     Dates: start: 20070508, end: 20070508
  10. TRANSAMIN [Suspect]
     Route: 042
     Dates: start: 20070508, end: 20070508
  11. MIYA BM [Concomitant]
     Dosage: 3G PER DAY
     Dates: start: 20070129, end: 20070507
  12. MIYA BM [Concomitant]
     Dosage: 3G PER DAY
     Route: 065
     Dates: start: 20070511, end: 20080517
  13. LAC B [Concomitant]
     Dosage: 3G PER DAY
     Route: 065
     Dates: start: 20070129, end: 20070507
  14. LAC B [Concomitant]
     Dosage: 3G PER DAY
     Dates: start: 20070511, end: 20070517
  15. ASPARA K [Concomitant]
     Dosage: 3.6G PER DAY
     Dates: start: 20070307, end: 20070507
  16. ASPARA K [Concomitant]
     Dosage: 3.6G PER DAY
     Dates: start: 20070511, end: 20070517
  17. RITALIN [Concomitant]
     Indication: EPILEPSY
     Dates: start: 20070307, end: 20070320
  18. RITALIN [Concomitant]
     Dates: start: 20070321, end: 20070507
  19. RITALIN [Concomitant]
     Dates: start: 20070511, end: 20070517
  20. FUROSEMIDE [Concomitant]
     Indication: RENAL FAILURE
     Dosage: 20MG PER DAY
     Dates: start: 20070307, end: 20070507
  21. FUROSEMIDE [Concomitant]
     Dosage: 20MG PER DAY
     Dates: start: 20070511, end: 20070517
  22. VEEN F [Concomitant]
     Dosage: 500ML PER DAY
     Route: 042
     Dates: start: 20070508, end: 20070510
  23. VEEN-3G [Concomitant]
     Dosage: 500ML PER DAY
     Route: 042
     Dates: start: 20070508, end: 20070510
  24. VEEN-3G [Concomitant]
     Dosage: 500ML PER DAY
     Route: 042
     Dates: start: 20070519, end: 20070519
  25. SOLDEM 3A [Concomitant]
     Dosage: 500ML PER DAY
     Route: 042
     Dates: start: 20070508, end: 20070519
  26. UNKNOWN DRUG [Concomitant]
     Indication: NUTRITIONAL SUPPORT
     Dosage: 500ML PER DAY
     Route: 042
     Dates: start: 20070508, end: 20070510
  27. UNKNOWN DRUG [Concomitant]
     Dosage: 500ML PER DAY
     Route: 042
     Dates: start: 20070518, end: 20070518

REACTIONS (12)
  - BLOOD PRESSURE DECREASED [None]
  - BLOOD PRESSURE SYSTOLIC DECREASED [None]
  - CHOLECYSTITIS [None]
  - CYANOSIS [None]
  - DISSEMINATED INTRAVASCULAR COAGULATION [None]
  - HEPATITIS C [None]
  - ORAL MUCOSAL ERUPTION [None]
  - PLATELET COUNT DECREASED [None]
  - PNEUMONIA [None]
  - PYREXIA [None]
  - RASH [None]
  - TOXIC EPIDERMAL NECROLYSIS [None]
